FAERS Safety Report 4308708-3 (Version None)
Quarter: 2004Q1

REPORT INFORMATION
  Report Type: 
  Country: None (occurrence: None)
  Receive Date: 20040227
  Receipt Date: 20040223
  Transmission Date: 20041129
  Serious: Yes (Hospitalization, Other)
  Sender: FDA-Public Use
  Company Number: HQWYE280624FEB04

PATIENT
  Age: 69 Year
  Sex: Female
  Weight: 56.7 kg

DRUGS (1)
  1. MYLOTARG [Suspect]
     Indication: ACUTE MYELOID LEUKAEMIA
     Dosage: 15 MG 1 X PER 1 DAY, INTRAVENOUS
     Route: 042
     Dates: start: 20030926, end: 20030926

REACTIONS (4)
  - CHILLS [None]
  - NAUSEA [None]
  - PYREXIA [None]
  - VOMITING [None]
